FAERS Safety Report 9578728 (Version 1)
Quarter: 2013Q4

REPORT INFORMATION
  Report Type: Spontaneous
  Country: US (occurrence: US)
  Receive Date: 20131001
  Receipt Date: 20131001
  Transmission Date: 20140711
  Serious: No
  Sender: FDA-Public Use
  Company Number: US-AMGEN-USASP2013014356

PATIENT
  Sex: Female
  Weight: 61.68 kg

DRUGS (11)
  1. ENBREL [Suspect]
     Indication: RHEUMATOID ARTHRITIS
     Dosage: 50 MG, QWK
     Route: 058
  2. LEVOTHYROXIN [Concomitant]
     Dosage: 125 MCG
  3. FOLIC ACID [Concomitant]
     Dosage: UNK
  4. BIOFREEZE                          /00482701/ [Concomitant]
     Dosage: 4 %, UNK
  5. METHOTREXATE [Concomitant]
     Dosage: 1 GM, UNK
  6. PREDNISON [Concomitant]
     Dosage: 5 MG, UNK
  7. LISINOPRIL [Concomitant]
     Dosage: 2.5 MG, UNK
  8. ASPIRIN [Concomitant]
     Dosage: 81 MG, UNK
  9. VITAMIN D                          /00107901/ [Concomitant]
     Dosage: 400 UNIT, UNK
  10. MAGNESIUM [Concomitant]
     Dosage: 400 MG, UNK
  11. CALCIUM D                          /00944201/ [Concomitant]
     Dosage: UNK

REACTIONS (4)
  - Musculoskeletal pain [Unknown]
  - Blood pressure increased [Unknown]
  - Pain in extremity [Unknown]
  - Erythema [Unknown]
